FAERS Safety Report 9678253 (Version 1)
Quarter: 2013Q4

REPORT INFORMATION
  Report Type: Spontaneous
  Country: US (occurrence: US)
  Receive Date: 20131108
  Receipt Date: 20131108
  Transmission Date: 20140711
  Serious: No
  Sender: FDA-Public Use
  Company Number: US-UPSHER-SMITH LABORATORIES, INC.-13000621

PATIENT
  Age: 65 Year
  Sex: Female

DRUGS (14)
  1. JANTOVEN [Suspect]
     Indication: CEREBROVASCULAR ACCIDENT PROPHYLAXIS
     Dosage: 2 MG, QD
     Route: 048
  2. METOPROLOL [Concomitant]
     Dosage: UNK
  3. ISOSORBIDE MONONITRATE [Concomitant]
     Dosage: UNK
  4. LOSARTAN [Concomitant]
     Dosage: UNK
  5. PRASUGREL [Concomitant]
     Dosage: UNK
  6. PANTOPRAZOLE [Concomitant]
     Dosage: UNK
  7. VALACICLOVIR [Concomitant]
     Dosage: UNK
  8. CELEXA                             /00582602/ [Concomitant]
     Dosage: UNK
  9. PERCOCET                           /00446701/ [Concomitant]
     Dosage: UNK
  10. CRESTOR                            /01588601/ [Concomitant]
     Dosage: UNK
  11. LANTUS [Concomitant]
     Dosage: UNK
  12. NOVOLOG [Concomitant]
     Dosage: UNK
  13. ALPRAZOLAM [Concomitant]
     Dosage: UNK
  14. ASPIRIN [Concomitant]
     Dosage: UNK

REACTIONS (2)
  - Contusion [Recovering/Resolving]
  - Induration [Recovering/Resolving]
